FAERS Safety Report 24800323 (Version 1)
Quarter: 2025Q1

REPORT INFORMATION
  Report Type: Spontaneous
  Country: GR (occurrence: GR)
  Receive Date: 20250102
  Receipt Date: 20250102
  Transmission Date: 20250408
  Serious: Yes (Other)
  Sender: SAMSUNG BIOEPIS
  Company Number: GR-SAMSUNG BIOEPIS-SB-2024-39537

PATIENT
  Age: 14 Year
  Sex: Female

DRUGS (2)
  1. ADALIMUMAB [Suspect]
     Active Substance: ADALIMUMAB
     Indication: Juvenile spondyloarthritis
  2. PREDNISOLONE [Concomitant]
     Active Substance: PREDNISOLONE
     Indication: Juvenile spondyloarthritis

REACTIONS (3)
  - Cardiac failure [Recovered/Resolved]
  - Carditis [Recovered/Resolved]
  - Off label use [Unknown]
